FAERS Safety Report 17362050 (Version 2)
Quarter: 2020Q1

REPORT INFORMATION
  Report Type: Report from Study
  Country: US (occurrence: US)
  Receive Date: 20200203
  Receipt Date: 20200303
  Transmission Date: 20200409
  Serious: Yes (Other)
  Sender: FDA-Public Use
  Company Number: NVSC2020US022211

PATIENT
  Sex: Female

DRUGS (2)
  1. PIQRAY [Suspect]
     Active Substance: ALPELISIB
     Route: 048
  2. PIQRAY [Suspect]
     Active Substance: ALPELISIB
     Indication: PRODUCT USED FOR UNKNOWN INDICATION
     Route: 048

REACTIONS (9)
  - Neuropathy peripheral [Unknown]
  - Thirst [Unknown]
  - Nail injury [Unknown]
  - Fatigue [Unknown]
  - Asthenia [Unknown]
  - Alopecia [Unknown]
  - Diarrhoea [Unknown]
  - Skin exfoliation [Unknown]
  - Dehydration [Unknown]
